FAERS Safety Report 5755612-X (Version None)
Quarter: 2008Q2

REPORT INFORMATION
  Report Type: 
  Country: None (occurrence: None)
  Receive Date: 20080528
  Receipt Date: 20080512
  Transmission Date: 20081010
  Serious: Yes (Other)
  Sender: FDA-Public Use
  Company Number: 2008001111

PATIENT
  Age: 71 Year
  Sex: Female

DRUGS (3)
  1. ERLOTINIB (ERLOTINIB HCL) (TABLET)(ERLOTINIB HCL) [Suspect]
     Indication: OVARIAN NEOPLASM
     Dosage: (150 MG,QD),ORAL
     Route: 048
     Dates: start: 20070607
  2. METOPROLOL TARTRATE [Concomitant]
  3. FUROSEMIDE [Concomitant]

REACTIONS (1)
  - HYPERTENSION [None]
